FAERS Safety Report 4363225-X (Version None)
Quarter: 2004Q2

REPORT INFORMATION
  Report Type: 
  Country: None (occurrence: None)
  Receive Date: 20040517
  Receipt Date: 20040128
  Transmission Date: 20050107
  Serious: No
  Sender: FDA-Public Use
  Company Number: S04-USA-00748-01

PATIENT
  Age: 70 Year
  Sex: Female

DRUGS (6)
  1. MEMANTINE [Suspect]
     Indication: DEMENTIA ALZHEIMER'S TYPE
     Dosage: 10 MG QD PO
     Route: 048
     Dates: start: 20030801
  2. REMINYL [Concomitant]
  3. ASPIRIN [Concomitant]
  4. ATENOLOL [Concomitant]
  5. HYDROCHLOROTHIAZIDE [Concomitant]
  6. POTASSIUM CHLORIDE [Concomitant]

REACTIONS (1)
  - ALOPECIA [None]
